FAERS Safety Report 16818164 (Version 3)
Quarter: 2019Q4

REPORT INFORMATION
  Report Type: Report from Study
  Country: AR (occurrence: AR)
  Receive Date: 20190917
  Receipt Date: 20191014
  Transmission Date: 20200122
  Serious: Yes (Other)
  Sender: FDA-Public Use
  Company Number: AR-JNJFOC-20190911037

PATIENT
  Age: 79 Year
  Sex: Female

DRUGS (3)
  1. RIVAROXABAN [Suspect]
     Active Substance: RIVAROXABAN
     Indication: ATRIAL FIBRILLATION
     Dosage: 15 MG, QD
     Route: 048
     Dates: start: 20190904
  2. LOTRIAL                            /00935901/ [Suspect]
     Active Substance: ENALAPRILAT
     Indication: HYPERTENSION
     Dosage: UNK
     Route: 065
  3. ATLANSIL                           /00133102/ [Concomitant]
     Indication: ARRHYTHMIA
     Dosage: UNK

REACTIONS (5)
  - Incorrect dose administered [Not Recovered/Not Resolved]
  - Hypertension [Recovered/Resolved]
  - Abdominal discomfort [Not Recovered/Not Resolved]
  - Nausea [Not Recovered/Not Resolved]
  - Decreased appetite [Unknown]

NARRATIVE: CASE EVENT DATE: 20190905
